FAERS Safety Report 5129837-0 (Version None)
Quarter: 2006Q4

REPORT INFORMATION
  Report Type: 
  Country: None (occurrence: None)
  Receive Date: 20061012
  Receipt Date: 20060929
  Transmission Date: 20070319
  Serious: Yes (Hospitalization, Other)
  Sender: FDA-Public Use
  Company Number: ALA_0011_2006

PATIENT
  Sex: Male

DRUGS (3)
  1. ROWASA [Suspect]
     Dosage: DF QDAY TPL
     Route: 061
     Dates: start: 19980101, end: 19981201
  2. ROWASA [Suspect]
     Dosage: DF QDAY
     Dates: start: 19981201, end: 19990101
  3. PREDNISONE TAB [Concomitant]

REACTIONS (19)
  - ABDOMINAL DISTENSION [None]
  - ABDOMINAL PAIN [None]
  - ALLERGY TO ANIMAL [None]
  - DRUG DEPENDENCE [None]
  - DRUG EXPOSURE DURING PREGNANCY [None]
  - DRUG EXPOSURE VIA BREAST MILK [None]
  - EYE OEDEMA [None]
  - HOUSE DUST ALLERGY [None]
  - INSOMNIA [None]
  - MYCOTIC ALLERGY [None]
  - NAUSEA [None]
  - NEONATAL DISORDER [None]
  - NEPHROTIC SYNDROME [None]
  - SINUSITIS [None]
  - TESTICULAR SWELLING [None]
  - UNDERWEIGHT [None]
  - VARICELLA POST VACCINE [None]
  - VOMITING [None]
  - WEIGHT INCREASED [None]
